FAERS Safety Report 10357331 (Version 4)
Quarter: 2015Q1

REPORT INFORMATION
  Report Type: Spontaneous
  Country: GB (occurrence: GB)
  Receive Date: 20140801
  Receipt Date: 20150225
  Transmission Date: 20150720
  Serious: Yes (Other)
  Sender: FDA-Public Use
  Company Number: GB-WATSON-2014-16407

PATIENT
  Age: 32 Year
  Sex: Female
  Weight: 79.2 kg

DRUGS (3)
  1. PRIVIGEN [Suspect]
     Active Substance: HUMAN IMMUNOGLOBULIN G
     Indication: MYASTHENIA GRAVIS
     Dosage: 25 G, UNKNOWN
     Route: 042
  2. PYRIDOSTIGMINE [Suspect]
     Active Substance: PYRIDOSTIGMINE
     Indication: MYASTHENIA GRAVIS
     Dosage: UNK
     Route: 065
  3. PREDNISOLONE (UNKNOWN) [Suspect]
     Active Substance: PREDNISOLONE
     Indication: MYASTHENIA GRAVIS
     Dosage: 35 MG, QOD
     Route: 048

REACTIONS (5)
  - Meningitis aseptic [Unknown]
  - Photophobia [Unknown]
  - Condition aggravated [Unknown]
  - Nuchal rigidity [Unknown]
  - Headache [Unknown]
